FAERS Safety Report 5663461-6 (Version None)
Quarter: 2008Q1

REPORT INFORMATION
  Report Type: 
  Country: None (occurrence: None)
  Receive Date: 20080313
  Receipt Date: 20080306
  Transmission Date: 20080703
  Serious: Yes (Hospitalization)
  Sender: FDA-Public Use
  Company Number: US-BAXTER-2008BH002013

PATIENT
  Age: 63 Year
  Sex: Female
  Weight: 68 kg

DRUGS (2)
  1. HEPARIN SODIUM [Suspect]
     Indication: THROMBOSIS PROPHYLAXIS
     Dosage: DOSE UNIT:UNKNOWN
     Route: 058
     Dates: start: 20080123, end: 20080210
  2. ROXICET [Concomitant]
     Indication: BACK PAIN
     Route: 048
     Dates: start: 19850101

REACTIONS (5)
  - ABDOMINAL WOUND DEHISCENCE [None]
  - HEADACHE [None]
  - NAUSEA [None]
  - POSTOPERATIVE WOUND INFECTION [None]
  - THROMBOSIS [None]
